FAERS Safety Report 9234451 (Version 1)
Quarter: 2013Q2

REPORT INFORMATION
  Report Type: Spontaneous
  Country: US (occurrence: US)
  Receive Date: 20130416
  Receipt Date: 20130416
  Transmission Date: 20140414
  Serious: No
  Sender: FDA-Public Use
  Company Number: US-BANPHARM-20120058

PATIENT
  Age: 73 Year
  Sex: Male
  Weight: 99.77 kg

DRUGS (2)
  1. NAPROXEN SODIUM 220 MG [Suspect]
     Indication: ARTHRITIS
     Dosage: 220 MG, BID,
     Route: 048
     Dates: start: 20120806, end: 20120807
  2. ANTIHYPERTENSIVES [Concomitant]
     Dosage: ONGOING
     Route: 048

REACTIONS (3)
  - Chest discomfort [Recovered/Resolved]
  - Dyspepsia [Recovered/Resolved]
  - Nausea [Not Recovered/Not Resolved]
